FAERS Safety Report 8424473-2 (Version None)
Quarter: 2012Q2

REPORT INFORMATION
  Report Type: 
  Country: None (occurrence: None)
  Receive Date: 20120610
  Receipt Date: 20120502
  Transmission Date: 20120825
  Serious: Yes (Death)
  Sender: FDA-Public Use
  Company Number: PHHO2012DE008605

PATIENT

DRUGS (2)
  1. EVEROLIMUS [Suspect]
     Dosage: 2.5 MG, QD
     Route: 065
  2. IMATINIB MESYLATE [Suspect]
     Dosage: 600 MG, QD
     Route: 065

REACTIONS (1)
  - INTRA-ABDOMINAL HAEMORRHAGE [None]
